FAERS Safety Report 10054915 (Version 2)
Quarter: 2014Q2

REPORT INFORMATION
  Report Type: Report from Study
  Country: US (occurrence: US)
  Receive Date: 20140402
  Receipt Date: 20140404
  Transmission Date: 20141212
  Serious: Yes (Other)
  Sender: FDA-Public Use
  Company Number: PHEH2014US006442

PATIENT
  Sex: Male

DRUGS (27)
  1. MYFORTIC [Suspect]
     Indication: RENAL TRANSPLANT
     Dosage: 3 DF, BID
     Dates: start: 20130625
  2. PROGRAF [Concomitant]
     Dosage: 3 MG, QD
     Route: 048
  3. PREDNISONE [Concomitant]
     Dosage: 5 MG, QD
     Route: 048
  4. BACTRIM DS [Concomitant]
     Dosage: UNK (800/160 MG)
     Route: 048
  5. VALCYTE [Concomitant]
     Dosage: UNK UKN, UNK
  6. PEPCID [Concomitant]
     Dosage: UNK UKN, UNK
     Route: 048
  7. MAGNESIUM OXIDE [Concomitant]
     Dosage: 400 MG, UNK
     Route: 048
  8. MULTIVIT//VITAMINS NOS [Concomitant]
     Dosage: UNK UKN, UNK
     Route: 048
  9. COLACE [Concomitant]
     Dosage: UNK UKN, BID
     Route: 048
  10. PLAVIX [Concomitant]
     Dosage: 75 MG, QD
     Route: 048
  11. ASPIRIN [Concomitant]
     Dosage: 325 MG, UNK
  12. METOPROLOL [Concomitant]
     Dosage: 25 MG, UNK
  13. LOSARTAN [Concomitant]
     Dosage: 50 MG, BID
  14. NITROGLYCERIN [Concomitant]
     Dosage: 0.4 MG, PRN
  15. DULCOLAX [Concomitant]
     Dosage: UNK UKN, PRN
  16. LACTULOSE [Concomitant]
     Dosage: UNK UKN, PRN
  17. BUMEX [Concomitant]
     Dosage: UNK UKN, UNK
  18. PRAVACHOL [Concomitant]
     Dosage: UNK UKN, UNK
  19. POTASSIUM CHLORIDE [Concomitant]
     Dosage: 20 MEQ, UNK
  20. NEURONTIN [Concomitant]
     Dosage: 100 MG, BID
  21. SYNTHROID [Concomitant]
     Dosage: 112 UG, UNK
  22. NOVOLOG [Concomitant]
     Dosage: UNK UKN, UNK
  23. LANTUS [Concomitant]
     Dosage: UNK UKN, UNK
  24. BACTRIM [Concomitant]
     Route: 048
  25. PHOSPHATE                          /01053101/ [Concomitant]
     Route: 048
  26. ASA [Concomitant]
     Dosage: 320 MG, QD
     Route: 048
  27. K-DUR [Concomitant]
     Dosage: 20 MEQ, UNK

REACTIONS (1)
  - Spinal column stenosis [Unknown]
